FAERS Safety Report 10608370 (Version 1)
Quarter: 2014Q4

REPORT INFORMATION
  Report Type: Spontaneous
  Country: DE (occurrence: DE)
  Receive Date: 20141125
  Receipt Date: 20141125
  Transmission Date: 20150529
  Serious: Yes (Congenital Anomaly, Other)
  Sender: FDA-Public Use
  Company Number: DE-TEVA-522754GER

PATIENT
  Age: 1 Day
  Sex: Female

DRUGS (1)
  1. CARBAMAZEPIN [Suspect]
     Active Substance: CARBAMAZEPINE
     Indication: GENERALISED TONIC-CLONIC SEIZURE
     Dosage: 300 MILLIGRAM DAILY;
     Route: 064
     Dates: start: 20130503, end: 20140130

REACTIONS (5)
  - Respiratory disorder neonatal [Recovered/Resolved]
  - Melanocytic naevus [Unknown]
  - Exostosis [Unknown]
  - Foetal exposure during pregnancy [Unknown]
  - Gamma-glutamyltransferase increased [Unknown]

NARRATIVE: CASE EVENT DATE: 20140130
